FAERS Safety Report 5726426-1 (Version None)
Quarter: 2008Q2

REPORT INFORMATION
  Report Type: 
  Country: None (occurrence: None)
  Receive Date: 20080502
  Receipt Date: 20080422
  Transmission Date: 20081010
  Serious: Yes (Other)
  Sender: FDA-Public Use
  Company Number: B0360828A

PATIENT
  Sex: Female

DRUGS (14)
  1. PAROXETINE HCL [Suspect]
     Indication: DEPRESSION
     Route: 065
     Dates: start: 20010608
  2. FLUANXOL [Suspect]
     Dates: start: 20030618
  3. DOSULEPIN [Suspect]
  4. MOCLOBEMIDE [Concomitant]
  5. ZOPICLONE [Concomitant]
     Dates: start: 20020601
  6. LOFEPRAMINE [Concomitant]
  7. SERTRALINE [Concomitant]
  8. ESCITALOPRAM OXALATE [Concomitant]
  9. TRAMADOL HCL [Concomitant]
  10. MIRTAZAPINE [Concomitant]
  11. VENLAFAXINE HCL [Concomitant]
  12. TEMAZEPAM [Concomitant]
  13. RABEPRAZOLE SODIUM [Concomitant]
  14. BUSCOPAN [Concomitant]

REACTIONS (22)
  - AGITATION [None]
  - ANOREXIA [None]
  - CHEST PAIN [None]
  - CONFUSIONAL STATE [None]
  - CRYING [None]
  - DIARRHOEA [None]
  - DRUG INEFFECTIVE [None]
  - DRUG WITHDRAWAL SYNDROME [None]
  - FATIGUE [None]
  - HEADACHE [None]
  - INSOMNIA [None]
  - INTENTIONAL SELF-INJURY [None]
  - NAUSEA [None]
  - PALPITATIONS [None]
  - PANIC ATTACK [None]
  - PARAESTHESIA [None]
  - PSYCHIATRIC SYMPTOM [None]
  - SUICIDAL IDEATION [None]
  - SUICIDE ATTEMPT [None]
  - TREMOR [None]
  - VISION BLURRED [None]
  - VOMITING [None]
